FAERS Safety Report 17856976 (Version 1)
Quarter: 2020Q2

REPORT INFORMATION
  Report Type: Spontaneous
  Country: US (occurrence: US)
  Receive Date: 20200603
  Receipt Date: 20200603
  Transmission Date: 20200714
  Serious: Yes (Hospitalization, Other)
  Sender: FDA-Public Use
  Company Number: US-PROCTER_AND_GAMBLE-GS20065896

PATIENT
  Age: 39 Year
  Sex: Female

DRUGS (3)
  1. ALCOHOL. [Concomitant]
     Active Substance: ALCOHOL
     Dosage: UP TO SIX ALCOHOLIC BEVERAGES DAILY
     Route: 048
  2. CALCIUM CARBONATE, UNSPECIFIED [Suspect]
     Active Substance: CALCIUM CARBONATE
     Indication: DYSPEPSIA
     Dosage: 1.5 GRAM, DAILY FOR THE PAST FIVE YEARS
     Route: 048
  3. CALCIUM CARBONATE, UNSPECIFIED [Suspect]
     Active Substance: CALCIUM CARBONATE
     Dosage: INCREASING INTAKE IN EXCESS OF 6 GRAMS
     Route: 048

REACTIONS (46)
  - Headache [Unknown]
  - Disturbance in attention [Recovered/Resolved]
  - Blood potassium decreased [Recovered/Resolved]
  - PO2 decreased [Recovered/Resolved]
  - Postictal state [Recovered/Resolved]
  - Fine motor skill dysfunction [Not Recovered/Not Resolved]
  - Diffusion-weighted brain MRI abnormal [Unknown]
  - Malaise [Unknown]
  - Confusional state [Recovered/Resolved]
  - Unresponsive to stimuli [Recovered/Resolved]
  - Dysmetria [Not Recovered/Not Resolved]
  - Metabolic alkalosis [Recovered/Resolved]
  - Acute kidney injury [Unknown]
  - Mental status changes [Recovered/Resolved]
  - Gaze palsy [Recovered/Resolved]
  - Urine calcium/creatinine ratio increased [Recovered/Resolved]
  - Magnetic resonance imaging brain abnormal [Unknown]
  - Tremor [Recovered/Resolved]
  - Blood calcium increased [Recovered/Resolved]
  - Blood creatinine increased [Recovered/Resolved]
  - Blood bicarbonate increased [Recovered/Resolved]
  - Malignant hypertension [Recovered/Resolved]
  - Generalised tonic-clonic seizure [None]
  - Speech disorder [Recovered/Resolved]
  - CSF protein increased [Recovered/Resolved]
  - Brain oedema [Unknown]
  - Hypercalciuria [Unknown]
  - Hypertension [Recovered/Resolved]
  - Milk-alkali syndrome [Recovered/Resolved]
  - Toxic encephalopathy [Recovered/Resolved]
  - Blood pressure diastolic increased [Recovered/Resolved]
  - Blood albumin decreased [Recovered/Resolved]
  - White blood cell count increased [Recovered/Resolved]
  - Blood magnesium decreased [Recovered/Resolved]
  - CSF glucose increased [Recovered/Resolved]
  - Electroencephalogram abnormal [Unknown]
  - Seizure [Recovered/Resolved]
  - Overdose [Unknown]
  - Blood pressure systolic increased [Recovered/Resolved]
  - Hypoxia [Unknown]
  - Hypomagnesaemia [Recovered/Resolved]
  - Posterior reversible encephalopathy syndrome [Recovered/Resolved]
  - Hypercalcaemia [Recovered/Resolved]
  - Vomiting [Unknown]
  - Heart rate increased [Unknown]
  - Repetitive speech [Recovered/Resolved]
